FAERS Safety Report 24874210 (Version 1)
Quarter: 2025Q1

REPORT INFORMATION
  Report Type: Spontaneous
  Country: US (occurrence: None)
  Receive Date: 20250121
  Receipt Date: 20250121
  Transmission Date: 20250409
  Serious: Yes (Life-Threatening)
  Sender: FDA-CTU
  Company Number: None

PATIENT
  Age: 59 Year
  Sex: Male
  Weight: 157.7 kg

DRUGS (2)
  1. CEFAZOLIN [Suspect]
     Active Substance: CEFAZOLIN
     Indication: Preventive surgery
     Route: 042
     Dates: start: 20250107, end: 20250107
  2. ONDANSETRON [Suspect]
     Active Substance: ONDANSETRON

REACTIONS (6)
  - Unresponsive to stimuli [None]
  - Agitation [None]
  - Aggression [None]
  - Nausea [None]
  - Cardio-respiratory arrest [None]
  - Atrial fibrillation [None]

NARRATIVE: CASE EVENT DATE: 20250107
